FAERS Safety Report 9135801 (Version 1)
Quarter: 2013Q1

REPORT INFORMATION
  Report Type: Spontaneous
  Country: AU (occurrence: AU)
  Receive Date: 20130304
  Receipt Date: 20130304
  Transmission Date: 20140127
  Serious: Yes (Other)
  Sender: FDA-Public Use
  Company Number: PHHY2013AU016728

PATIENT
  Sex: Male

DRUGS (7)
  1. METHYLPHENIDATE [Suspect]
  2. VOLTAREN [Suspect]
  3. RHINOCORT (BUDESONIDE) [Suspect]
     Dosage: UNK UKN, UNK
  4. NEXIUM//ESOMEPRAZOLE MAGNESIUM [Suspect]
  5. SIGMACORT//HYDROCORTISONE ACETATE [Suspect]
     Dosage: UNK UKN, UNK
  6. TRITACE [Suspect]
     Dosage: UNK UKN, UNK
  7. VIAGRA [Suspect]
     Dosage: UNK UKN, UNK

REACTIONS (1)
  - Haematuria [Unknown]
